FAERS Safety Report 12634835 (Version 2)
Quarter: 2016Q3

REPORT INFORMATION
  Report Type: Spontaneous
  Country: None (occurrence: US)
  Receive Date: 20160808
  Receipt Date: 20160816
  Transmission Date: 20161109
  Serious: Yes (Hospitalization)
  Sender: FDA-Public Use
  Company Number: US-RARE DISEASE THERAPEUTICS, INC.-1055938

PATIENT
  Age: 18 Month
  Sex: Male
  Weight: 9.07 kg

DRUGS (3)
  1. LEVOCARNITINE. [Concomitant]
     Active Substance: LEVOCARNITINE
  2. HYDROXOCOBALAMIN ACETATE. [Concomitant]
     Active Substance: HYDROXOCOBALAMIN ACETATE
  3. CYSTADANE [Suspect]
     Active Substance: BETAINE
     Indication: VITAMIN B12 DEFICIENCY
     Dates: start: 20150303

REACTIONS (2)
  - Overdose [None]
  - Gastrointestinal viral infection [Recovered/Resolved]

NARRATIVE: CASE EVENT DATE: 20160630
